FAERS Safety Report 21352584 (Version 1)
Quarter: 2022Q3

REPORT INFORMATION
  Report Type: Spontaneous
  Country: PL (occurrence: PL)
  Receive Date: 20220920
  Receipt Date: 20220920
  Transmission Date: 20221027
  Serious: Yes (Hospitalization, Other)
  Sender: FDA-Public Use
  Company Number: PL-SUN PHARMACEUTICAL INDUSTRIES LTD-2022R1-355028

PATIENT
  Sex: Female

DRUGS (3)
  1. MORPHINE [Suspect]
     Active Substance: MORPHINE
     Indication: Behaviour disorder
     Dosage: UNK
     Route: 042
  2. METHAMPHETAMINE [Suspect]
     Active Substance: METHAMPHETAMINE
     Indication: Behaviour disorder
     Dosage: UNK
     Route: 042
  3. DRONABINOL [Suspect]
     Active Substance: DRONABINOL
     Indication: Behaviour disorder
     Dosage: UNK
     Route: 065

REACTIONS (25)
  - Abdominal tenderness [Unknown]
  - Drug dependence [Unknown]
  - Dehydration [Unknown]
  - Drug abuse [Unknown]
  - Dry mouth [Unknown]
  - Headache [Unknown]
  - Nausea [Unknown]
  - Pain [Unknown]
  - Pyrexia [Unknown]
  - Tachypnoea [Unknown]
  - Tachycardia [Unknown]
  - Tremor [Unknown]
  - Toxicity to various agents [Unknown]
  - Vomiting [Unknown]
  - C-reactive protein increased [Recovering/Resolving]
  - Eosinopenia [Unknown]
  - Hyperaesthesia [Unknown]
  - Hypocapnia [Unknown]
  - Intentional self-injury [Unknown]
  - Immunoglobulins increased [Unknown]
  - Leukopenia [Unknown]
  - Lymphopenia [Unknown]
  - Monocytosis [Unknown]
  - Procalcitonin increased [Recovering/Resolving]
  - Vitamin D decreased [Unknown]
